FAERS Safety Report 5015844-5 (Version None)
Quarter: 2006Q2

REPORT INFORMATION
  Report Type: 
  Country: None (occurrence: None)
  Receive Date: 20060531
  Receipt Date: 20060531
  Transmission Date: 20061013
  Serious: No
  Sender: FDA-Public Use
  Company Number: None

PATIENT
  Age: 58 Year
  Sex: Male
  Weight: 110.2241 kg

DRUGS (1)
  1. MEROPENEM [Suspect]
     Dosage: 1000 MG IV QD
     Route: 042

REACTIONS (1)
  - STEVENS-JOHNSON SYNDROME [None]
